FAERS Safety Report 7905678-3 (Version None)
Quarter: 2011Q4

REPORT INFORMATION
  Report Type: 
  Country: None (occurrence: None)
  Receive Date: 20111110
  Receipt Date: 20111101
  Transmission Date: 20120403
  Serious: Yes (Other)
  Sender: FDA-Public Use
  Company Number: ES-PAR PHARMACEUTICAL, INC-2011SCPR003399

PATIENT

DRUGS (11)
  1. IBUPROFEN [Suspect]
     Indication: PRODUCT USED FOR UNKNOWN INDICATION
     Dosage: UNK, UNKNOWN
     Route: 065
  2. CETIRIZINE HCL [Suspect]
     Dosage: PATCH TEST IN 5% PETROLATUM
     Route: 065
  3. LORATADINE [Suspect]
     Indication: ALLERGY TEST
     Dosage: 10 MG
     Route: 065
  4. LORATADINE [Suspect]
     Dosage: PATCH TEST IN 5% PETROLATUM
     Route: 065
  5. PIROXICAM [Suspect]
     Indication: ALLERGY TEST
     Dosage: 10 MG, UNK
     Route: 048
  6. CETIRIZINE HCL [Suspect]
     Indication: ANGIOEDEMA
     Dosage: 10 MG/ML, SKIN PRICK TEST
     Route: 065
  7. NAPROXEN [Suspect]
     Indication: PRODUCT USED FOR UNKNOWN INDICATION
     Dosage: UNK, UNKNOWN
     Route: 065
  8. LORATADINE [Suspect]
     Dosage: 5 MG, UNK
     Route: 048
  9. LORATADINE [Suspect]
     Dosage: 10 MG, ADMINISTERED IN AN OPAQUE GELATINE CAPSULE AT 60-MINUTE INTERVALS
     Route: 048
  10. PIROXICAM [Suspect]
     Dosage: 20 MG, ADMINISTERED IN AN OPAQUE GELATINE CAPSULE AT 120-MINUTE INTERVALS
     Route: 048
  11. CETIRIZINE HCL [Suspect]
     Indication: URTICARIA
     Dosage: UNK
     Route: 048

REACTIONS (4)
  - DRUG INTERACTION [None]
  - ANGIOEDEMA [None]
  - URTICARIA [None]
  - ORAL PRURITUS [None]
